FAERS Safety Report 9819266 (Version 4)
Quarter: 2014Q2

REPORT INFORMATION
  Report Type: Spontaneous
  Country: US (occurrence: US)
  Receive Date: 20140115
  Receipt Date: 20140417
  Transmission Date: 20141212
  Serious: Yes (Life-Threatening, Hospitalization, Other)
  Sender: FDA-Public Use
  Company Number: US-MERCK-1401USA004873

PATIENT
  Sex: Male
  Weight: 83.45 kg

DRUGS (18)
  1. JANUVIA [Suspect]
     Indication: TYPE 2 DIABETES MELLITUS
     Dosage: 100 MG, QD
     Route: 048
     Dates: start: 20110331, end: 20110829
  2. JANUMET [Suspect]
     Indication: TYPE 2 DIABETES MELLITUS
     Dosage: 500 MG, Q12H
     Route: 048
     Dates: end: 20110829
  3. HYDRALAZINE [Concomitant]
     Indication: HYPERTENSION
  4. GABAPENTIN [Concomitant]
     Indication: DIABETIC NEUROPATHY
     Dosage: 300 MG, TID
     Route: 048
     Dates: start: 2010
  5. METOPROLOL [Concomitant]
     Indication: HYPERTENSION
     Dosage: 50 MG, BID
     Route: 048
  6. TRAMADOL HYDROCHLORIDE [Concomitant]
     Indication: PAIN
     Dosage: UNK
     Dates: start: 2010
  7. TRAMADOL HYDROCHLORIDE [Concomitant]
     Indication: DIABETIC NEUROPATHY
  8. NEURONTIN [Concomitant]
     Indication: DIABETIC NEUROPATHY
     Dosage: 300 MG, 2 CAPSULES TID
     Route: 048
  9. ESIDRIX [Concomitant]
     Indication: HYPERTENSION
     Dosage: 25 MG, QD
     Route: 048
     Dates: end: 20110829
  10. GLUCOTROL [Concomitant]
     Indication: TYPE 2 DIABETES MELLITUS
     Dosage: 10 MG, BID
     Route: 048
     Dates: end: 20110829
  11. LISINOPRIL [Concomitant]
     Indication: HYPERTENSION
     Dosage: 20 MG, QD
     Route: 048
  12. LISINOPRIL [Concomitant]
     Dosage: 40 MG, QD
     Route: 048
     Dates: start: 20110829
  13. GLUCOPHAGE [Concomitant]
     Dosage: 1000 MG, BID
     Route: 048
     Dates: end: 20110829
  14. ULTRAM [Concomitant]
     Indication: PAIN
     Dosage: 50 MG, 1-3 TABS BID PRN
     Route: 048
  15. HYDROCHLOROTHIAZIDE [Concomitant]
     Indication: HYPERTENSION
     Dosage: UNK
     Dates: end: 20110829
  16. AMLODIPINE [Concomitant]
     Indication: HYPERTENSION
     Dosage: 5 MG, QD
     Route: 048
  17. NOVOLOG [Concomitant]
     Indication: TYPE 2 DIABETES MELLITUS
  18. LANTUS [Concomitant]
     Indication: TYPE 2 DIABETES MELLITUS

REACTIONS (47)
  - Pancreatic carcinoma [Unknown]
  - Pancreaticoduodenectomy [Unknown]
  - Biopsy stomach [Unknown]
  - Biopsy liver [Unknown]
  - Pancreatitis chronic [Unknown]
  - Renal failure acute [Unknown]
  - Renal failure [Unknown]
  - Renal failure chronic [Not Recovered/Not Resolved]
  - Insulin-requiring type 2 diabetes mellitus [Unknown]
  - Arthritis [Unknown]
  - Hypovolaemia [Unknown]
  - Hepatitis C [Unknown]
  - Inguinal hernia [Unknown]
  - Adjustment disorder with mixed anxiety and depressed mood [Unknown]
  - Treatment noncompliance [Unknown]
  - Diabetes mellitus inadequate control [Unknown]
  - Haemorrhagic anaemia [Unknown]
  - Erectile dysfunction [Unknown]
  - Psoriasis [Unknown]
  - Diabetic nephropathy [Unknown]
  - Hyperlipidaemia [Unknown]
  - Dyspnoea [Recovered/Resolved]
  - Penile swelling [Recovered/Resolved]
  - Incisional hernia repair [Unknown]
  - Seroma [Unknown]
  - Abdominal hernia [Recovered/Resolved]
  - Pancreatic insufficiency [Unknown]
  - Wound infection staphylococcal [Unknown]
  - Postoperative wound infection [Unknown]
  - Gastrooesophageal reflux disease [Unknown]
  - Abdominal distension [Unknown]
  - Pancreatic calcification [Unknown]
  - Pancreatolithiasis [Unknown]
  - Liver disorder [Unknown]
  - Spleen disorder [Unknown]
  - Deep vein thrombosis [Unknown]
  - Sleep disorder [Unknown]
  - Anaemia of chronic disease [Not Recovered/Not Resolved]
  - Spinal osteoarthritis [Unknown]
  - Vitamin D deficiency [Unknown]
  - Cyst [Unknown]
  - Pancreatic duct dilatation [Unknown]
  - Oedema peripheral [Unknown]
  - Headache [Unknown]
  - Constipation [Unknown]
  - Skin exfoliation [Unknown]
  - Pain in extremity [Not Recovered/Not Resolved]
